FAERS Safety Report 8466758-X (Version None)
Quarter: 2012Q2

REPORT INFORMATION
  Report Type: 
  Country: None (occurrence: None)
  Receive Date: 20120626
  Receipt Date: 20120625
  Transmission Date: 20120825
  Serious: No
  Sender: FDA-Public Use
  Company Number: US-PFIZER INC-2012152607

PATIENT
  Sex: Female
  Weight: 128 kg

DRUGS (3)
  1. LYRICA [Suspect]
     Indication: NERVE INJURY
     Dosage: 75 MG, 1X/DAY
     Route: 048
     Dates: start: 20120605
  2. IBUPROFEN [Concomitant]
     Dosage: UNK
  3. LYRICA [Suspect]
     Indication: PAIN IN EXTREMITY

REACTIONS (2)
  - HYPOAESTHESIA [None]
  - FEELING ABNORMAL [None]
